FAERS Safety Report 6471444-1 (Version None)
Quarter: 2009Q4

REPORT INFORMATION
  Report Type: 
  Country: None (occurrence: None)
  Receive Date: 20091201
  Receipt Date: 20091103
  Transmission Date: 20100525
  Serious: Yes (Other)
  Sender: FDA-Public Use
  Company Number: 57385

PATIENT
  Sex: Female

DRUGS (1)
  1. OXY CLEANSING PADS, 2% SALICYLIC ACID, MENTHOLATUM [Suspect]
     Indication: ACNE
     Dosage: ONE TIME USE, TOPICAL
     Route: 061
     Dates: start: 20090801

REACTIONS (5)
  - BURNING SENSATION [None]
  - INFECTED SKIN ULCER [None]
  - IRRITABILITY [None]
  - SCAR [None]
  - SWELLING [None]
